FAERS Safety Report 22002698 (Version 1)
Quarter: 2023Q1

REPORT INFORMATION
  Report Type: Spontaneous
  Country: US (occurrence: US)
  Receive Date: 20230217
  Receipt Date: 20230217
  Transmission Date: 20230418
  Serious: Yes (Hospitalization, Other)
  Sender: FDA-Public Use
  Company Number: US-GILEAD-2023-0616779

PATIENT
  Age: 44 Year
  Sex: Male

DRUGS (1)
  1. BIKTARVY [Suspect]
     Active Substance: BICTEGRAVIR SODIUM\EMTRICITABINE\TENOFOVIR ALAFENAMIDE FUMARATE
     Indication: Product used for unknown indication
     Dosage: UNK
     Route: 065
     Dates: start: 202302

REACTIONS (6)
  - Muscle spasms [Unknown]
  - Pain [Unknown]
  - Back pain [Unknown]
  - Muscle spasms [Unknown]
  - Abdominal pain upper [Unknown]
  - Nephrolithiasis [Unknown]
